FAERS Safety Report 5448088-3 (Version None)
Quarter: 2007Q3

REPORT INFORMATION
  Report Type: 
  Country: None (occurrence: None)
  Receive Date: 20070801
  Receipt Date: 20070618
  Transmission Date: 20080115
  Serious: No
  Sender: FDA-Public Use
  Company Number: 2007-US-000205

PATIENT
  Age: 10 Year
  Sex: Male
  Weight: 19.8 kg

DRUGS (1)
  1. INCRELEX [Suspect]
     Indication: BLOOD GROWTH HORMONE ABNORMAL
     Dosage: 120 UG/KG, BID, SUBCUTANEOUS
     Route: 058
     Dates: start: 20070207, end: 20070313

REACTIONS (2)
  - INJECTION SITE ERYTHEMA [None]
  - INJECTION SITE URTICARIA [None]
